FAERS Safety Report 4437191-2 (Version None)
Quarter: 2004Q3

REPORT INFORMATION
  Report Type: 
  Country: None (occurrence: None)
  Receive Date: 20040726
  Receipt Date: 20040303
  Transmission Date: 20050211
  Serious: No
  Sender: FDA-Public Use
  Company Number: USA040360880

PATIENT
  Age: 75 Year
  Sex: Female
  Weight: 45 kg

DRUGS (1)
  1. FORTEO [Suspect]
     Dosage: 20 UG DAY
     Dates: start: 20041215

REACTIONS (4)
  - CHILLS [None]
  - HYPERSENSITIVITY [None]
  - PARAESTHESIA [None]
  - THROAT TIGHTNESS [None]
